FAERS Safety Report 21210623 (Version 3)
Quarter: 2022Q4

REPORT INFORMATION
  Report Type: Report from Study
  Country: BG (occurrence: BG)
  Receive Date: 20220815
  Receipt Date: 20221031
  Transmission Date: 20230113
  Serious: Yes (Hospitalization, Other)
  Sender: FDA-Public Use
  Company Number: BG-JNJFOC-20220812965

PATIENT
  Age: 51 Year
  Sex: Male

DRUGS (17)
  1. PONESIMOD [Suspect]
     Active Substance: PONESIMOD
     Indication: Relapsing multiple sclerosis
     Dosage: MAINTENANCE
     Route: 048
     Dates: start: 20181114, end: 20201122
  2. PONESIMOD [Suspect]
     Active Substance: PONESIMOD
     Dosage: MAINTENANCE
     Route: 048
     Dates: start: 20201125, end: 20201212
  3. PONESIMOD [Suspect]
     Active Substance: PONESIMOD
     Dosage: MAINTENANCE
     Route: 048
     Dates: start: 20201215
  4. DIETARY SUPPLEMENT\HERBALS\MILK THISTLE [Concomitant]
     Active Substance: DIETARY SUPPLEMENT\HERBALS\MILK THISTLE
     Indication: Hepatic enzyme increased
     Route: 048
     Dates: end: 20181103
  5. DIETARY SUPPLEMENT\HERBALS\MILK THISTLE [Concomitant]
     Active Substance: DIETARY SUPPLEMENT\HERBALS\MILK THISTLE
     Route: 048
     Dates: start: 20181204, end: 20191003
  6. DIETARY SUPPLEMENT\HERBALS\MILK THISTLE [Concomitant]
     Active Substance: DIETARY SUPPLEMENT\HERBALS\MILK THISTLE
     Route: 048
     Dates: start: 20191004
  7. ESOMEPRAZOLE [Concomitant]
     Active Substance: ESOMEPRAZOLE
     Indication: Gastrointestinal disorder therapy
     Route: 048
     Dates: start: 20190212, end: 20190214
  8. AVIRON RAPID [Concomitant]
     Indication: COVID-19
     Route: 048
     Dates: start: 20201123, end: 20201123
  9. AVIRON RAPID [Concomitant]
     Route: 048
     Dates: start: 20201124, end: 20201124
  10. AVIRON RAPID [Concomitant]
     Route: 048
     Dates: start: 20201125, end: 20201125
  11. VITAMIN C [Concomitant]
     Active Substance: ASCORBIC ACID
     Indication: COVID-19
     Route: 048
     Dates: start: 20201123, end: 20210101
  12. ACETAMINOPHEN [Concomitant]
     Active Substance: ACETAMINOPHEN
     Indication: COVID-19
     Route: 048
     Dates: start: 20201123, end: 20201214
  13. AZITHROMYCIN [Concomitant]
     Active Substance: AZITHROMYCIN
     Indication: COVID-19
     Route: 048
     Dates: start: 20201201, end: 20201206
  14. ASPIRIN [Concomitant]
     Active Substance: ASPIRIN
     Indication: COVID-19
     Route: 048
     Dates: start: 20201123, end: 20210101
  15. PREDNISOLON F [Concomitant]
     Indication: COVID-19
     Route: 048
     Dates: start: 20201201, end: 20201206
  16. CEFTRIAXONE SODIUM [Concomitant]
     Active Substance: CEFTRIAXONE SODIUM
  17. ALLDONE [Concomitant]

REACTIONS (2)
  - Melanocytic naevus [Recovered/Resolved with Sequelae]
  - Malignant melanoma [Not Recovered/Not Resolved]

NARRATIVE: CASE EVENT DATE: 20220708
